FAERS Safety Report 4422149-X (Version None)
Quarter: 2004Q3

REPORT INFORMATION
  Report Type: 
  Country: None (occurrence: None)
  Receive Date: 20040712
  Receipt Date: 20030718
  Transmission Date: 20050211
  Serious: Yes (Hospitalization, Disabling)
  Sender: FDA-Public Use
  Company Number: TAP2003Q01744

PATIENT
  Sex: Male

DRUGS (5)
  1. PREVACID [Suspect]
     Indication: GASTROOESOPHAGEAL REFLUX DISEASE
     Dosage: UNK, UNKNOWN, UNKNOWN
     Route: 065
     Dates: start: 19991101, end: 20030101
  2. PRILOSEC [Suspect]
     Indication: GASTROOESOPHAGEAL REFLUX DISEASE
     Dosage: UNK, UNKNOWN, UNKNOWN
     Route: 065
     Dates: start: 19991101, end: 20030101
  3. PROTONIX [Suspect]
     Indication: GASTROOESOPHAGEAL REFLUX DISEASE
     Dosage: UNK, UNKNOWN; UNKNOWN
     Route: 065
     Dates: start: 19991101, end: 20030101
  4. ACIPHEX [Suspect]
     Indication: GASTROOESOPHAGEAL REFLUX DISEASE
     Dosage: UNK, UNKNOWN, PER ORAL
     Route: 048
     Dates: start: 19991101, end: 20030101
  5. NEXIUM [Suspect]
     Indication: GASTROOESOPHAGEAL REFLUX DISEASE
     Dosage: UNK, UNKNOWN; PER ORAL
     Route: 048
     Dates: start: 19991101, end: 20030101

REACTIONS (13)
  - ANXIETY [None]
  - BACK PAIN [None]
  - CHEST PAIN [None]
  - COLD SWEAT [None]
  - DISTURBANCE IN ATTENTION [None]
  - DYSPNOEA [None]
  - HEPATIC ENZYME INCREASED [None]
  - LOSS OF CONSCIOUSNESS [None]
  - NAUSEA [None]
  - POST PROCEDURAL PAIN [None]
  - SUICIDAL IDEATION [None]
  - TOOTH DISORDER [None]
  - VOMITING [None]
